FAERS Safety Report 9471352 (Version 1)
Quarter: 2013Q3

REPORT INFORMATION
  Report Type: Spontaneous
  Country: US (occurrence: US)
  Receive Date: 20130822
  Receipt Date: 20130822
  Transmission Date: 20140515
  Serious: Yes (Death)
  Sender: FDA-Public Use
  Company Number: US-B.I. PHARMACEUTICALS,INC./RIDGEFIELD-2013-BI-25842BP

PATIENT
  Age: 52 Year
  Sex: Female

DRUGS (8)
  1. SPIRIVA [Suspect]
     Dosage: 18 MCG
     Route: 055
     Dates: start: 201304, end: 201307
  2. BROVANA [Concomitant]
     Route: 055
  3. NIFEDIPINE [Concomitant]
     Route: 048
  4. POTASSIUM [Concomitant]
     Route: 048
  5. DIGOXIN [Concomitant]
     Route: 048
  6. LEVOTHYROXINE [Concomitant]
     Route: 042
  7. XANAX [Concomitant]
     Route: 048
  8. TRIAMTERENE [Concomitant]
     Route: 048

REACTIONS (1)
  - Death [Fatal]
